FAERS Safety Report 7163020-2 (Version None)
Quarter: 2010Q4

REPORT INFORMATION
  Report Type: 
  Country: None (occurrence: None)
  Receive Date: 20101215
  Receipt Date: 20100211
  Transmission Date: 20110411
  Serious: Yes (Life-Threatening, Hospitalization, Other)
  Sender: FDA-Public Use
  Company Number: MX-PFIZER INC-2007055608

PATIENT
  Age: 22 Year
  Sex: Female
  Weight: 49 kg

DRUGS (6)
  1. PREGABALIN [Suspect]
     Indication: EPILEPSY
     Dosage: 75 MG, 2X/DAY
     Route: 048
     Dates: start: 20070503, end: 20070703
  2. PREGABALIN [Suspect]
     Dosage: 300MG PER DAY
     Dates: start: 20070704, end: 20070705
  3. PREDNISONE [Concomitant]
     Route: 048
     Dates: start: 20070622, end: 20070705
  4. NIMODIPINE [Concomitant]
     Route: 048
     Dates: start: 20070622, end: 20070705
  5. FLUOXETINE [Concomitant]
     Route: 048
     Dates: start: 20060101, end: 20070705
  6. DIFENIDOL [Concomitant]
     Route: 048
     Dates: start: 20070622, end: 20070622

REACTIONS (3)
  - PNEUMONIA [None]
  - SINUSITIS [None]
  - STATUS EPILEPTICUS [None]
